FAERS Safety Report 12380368 (Version 1)
Quarter: 2016Q2

REPORT INFORMATION
  Report Type: Spontaneous
  Country: US (occurrence: None)
  Receive Date: 20160516
  Receipt Date: 20160516
  Transmission Date: 20160815
  Serious: Yes (Hospitalization)
  Sender: FDA-Public Use
  Company Number: None

PATIENT
  Age: 76 Year
  Sex: Male

DRUGS (1)
  1. LITHIUM. [Suspect]
     Active Substance: LITHIUM
     Dates: start: 20141030

REACTIONS (4)
  - Nephrogenic diabetes insipidus [None]
  - Toxicity to various agents [None]
  - Acute kidney injury [None]
  - Cardiotoxicity [None]

NARRATIVE: CASE EVENT DATE: 20151220
